FAERS Safety Report 5782889-7 (Version None)
Quarter: 2008Q2

REPORT INFORMATION
  Report Type: 
  Country: None (occurrence: None)
  Receive Date: 20080624
  Receipt Date: 20080613
  Transmission Date: 20081010
  Serious: Yes (Hospitalization, Other)
  Sender: FDA-Public Use
  Company Number: DE-JNJFOC-20080603332

PATIENT
  Age: 85 Year
  Sex: Male

DRUGS (9)
  1. RISPERDAL [Suspect]
     Route: 048
  2. RISPERDAL [Suspect]
     Route: 048
  3. RISPERDAL [Suspect]
     Indication: RESTLESSNESS
     Route: 048
  4. UBRETID [Concomitant]
     Route: 048
  5. DELIX [Concomitant]
     Route: 048
  6. ARICEPT [Concomitant]
     Route: 048
  7. BROMAZEPAM [Concomitant]
     Route: 048
  8. BROMAZEPAM [Concomitant]
     Route: 048
  9. BROMAZEPAM [Concomitant]
     Route: 048

REACTIONS (3)
  - FALL [None]
  - PARKINSONISM [None]
  - UPPER LIMB FRACTURE [None]
